FAERS Safety Report 6526588-2 (Version None)
Quarter: 2010Q1

REPORT INFORMATION
  Report Type: 
  Country: None (occurrence: None)
  Receive Date: 20100105
  Receipt Date: 20091230
  Transmission Date: 20100710
  Serious: Yes (Death, Hospitalization)
  Sender: FDA-Public Use
  Company Number: FR-ROCHE-589446

PATIENT
  Sex: Female

DRUGS (13)
  1. CAPECITABINE [Suspect]
     Indication: GASTRIC CANCER
     Dosage: CYCLE 1 (3 COURSES).
     Route: 048
     Dates: start: 20060912
  2. CAPECITABINE [Suspect]
     Dosage: SECOND CYCLE OF 3 COURSES, DOSE REDUCED
     Route: 048
     Dates: start: 20061114
  3. EPIRUBICIN [Suspect]
     Indication: GASTRIC CANCER
     Dosage: FIRST CYCLE OF 3 COURSES
     Route: 065
     Dates: start: 20060912
  4. EPIRUBICIN [Suspect]
     Dosage: SECOND CYCLE OF 3 COURSES
     Route: 065
     Dates: start: 20061114
  5. EPIRUBICIN [Suspect]
     Dosage: THIRD CYCLE OF 3 COURSES
     Route: 065
     Dates: start: 20070131
  6. EPIRUBICIN [Suspect]
     Dosage: FOURTH CYCLE OF 1 COURSE
     Route: 065
     Dates: start: 20070419
  7. CISPLATIN [Suspect]
     Indication: GASTRIC CANCER
     Dosage: CYCLE 1 (3 COURSES).
     Route: 065
     Dates: start: 20060912
  8. CISPLATIN [Suspect]
     Dosage: SECOND CYCLE OF 3 COURSES
     Route: 065
     Dates: start: 20061114
  9. CISPLATIN [Suspect]
     Dosage: THIRD CYCLE OF 3 COURSES
     Route: 065
     Dates: start: 20070131
  10. CISPLATIN [Suspect]
     Dosage: FOURTH CYCLE OF 1 COURSE
     Route: 065
     Dates: start: 20070419
  11. IRINOTECAN HCL [Suspect]
     Indication: GASTRIC CANCER
     Dosage: SINGLE CYCLE OF 2 COURSES
     Route: 042
     Dates: start: 20070528
  12. FOLINIC ACID [Suspect]
     Indication: GASTRIC CANCER
     Dosage: 400 MG/M2 IN 250 ML GLUCOSE 5% Y INFUSION IN 2 HOUR
     Route: 042
     Dates: start: 20070528
  13. FLUOROURACIL [Suspect]
     Indication: GASTRIC CANCER
     Dosage: 5 FU 400 MG/M2 10 MINUTES BOLUS FOLLOWED BY 5 FU 2400 MG/M2 IN GLUCOSE 55 Y INFUSION DURING 46 HOURS
     Route: 050
     Dates: start: 20070528

REACTIONS (1)
  - GASTRIC CANCER [None]
